FAERS Safety Report 8160717-2 (Version None)
Quarter: 2012Q1

REPORT INFORMATION
  Report Type: 
  Country: None (occurrence: None)
  Receive Date: 20120223
  Receipt Date: 20120213
  Transmission Date: 20120608
  Serious: Yes (Hospitalization)
  Sender: FDA-Public Use
  Company Number: PHHY2011US66161

PATIENT
  Sex: Female
  Weight: 65 kg

DRUGS (14)
  1. GLEEVEC [Suspect]
     Indication: CHRONIC MYELOID LEUKAEMIA
     Dosage: 400 MG, QD
     Route: 048
     Dates: start: 20110613, end: 20110729
  2. PROCHLORPERAZINE [Concomitant]
     Indication: NAUSEA
     Dosage: 10 MG, Q6H PRN
  3. VICODIN [Concomitant]
  4. REQUIP [Concomitant]
  5. PREDNISONE [Concomitant]
     Dosage: 10 MG, QD
  6. CEPHALEXIN [Concomitant]
     Dosage: 500 MG, Q6H
  7. TRAMADOL HCL [Concomitant]
     Dosage: 50 MG, DAILY
  8. ADVAIR DISKUS 100/50 [Concomitant]
     Dosage: 250 MG/ 50 MG, ONE PUFF
  9. MORPHINE SULFATE [Concomitant]
     Dosage: 30 MG, Q4H PRN
     Route: 048
  10. LEVAQUIN [Concomitant]
  11. NYSTATIN [Concomitant]
     Dosage: UNK UKN, SWISH AND SWALLOW
  12. DEXLANSOPRAZOLE [Concomitant]
     Dosage: 30 MG, QD
  13. AZITHROMYCIN [Concomitant]
     Dosage: 500 MG, DAILY
  14. ALLOPURINOL [Concomitant]
     Dosage: 300 MG, DAILY

REACTIONS (4)
  - MUSCULOSKELETAL PAIN [None]
  - MUSCLE CONTRACTIONS INVOLUNTARY [None]
  - BACK PAIN [None]
  - VOMITING [None]
